FAERS Safety Report 22137843 (Version 1)
Quarter: 2023Q1

REPORT INFORMATION
  Report Type: Spontaneous
  Country: US (occurrence: US)
  Receive Date: 20230325
  Receipt Date: 20230325
  Transmission Date: 20230418
  Serious: Yes (Other)
  Sender: FDA-Public Use
  Company Number: US-ABBVIE-4702885

PATIENT
  Age: 62 Year
  Sex: Male

DRUGS (7)
  1. LEUPROLIDE ACETATE [Suspect]
     Active Substance: LEUPROLIDE ACETATE
     Indication: Hormone-refractory prostate cancer
     Route: 065
  2. XGEVA [Suspect]
     Active Substance: DENOSUMAB
     Indication: Hormone-refractory prostate cancer
     Route: 065
  3. ZYTIGA [Suspect]
     Active Substance: ABIRATERONE ACETATE
     Indication: Hormone-refractory prostate cancer
     Route: 065
  4. JEVTANA [Suspect]
     Active Substance: CABAZITAXEL
     Indication: Hormone-refractory prostate cancer
     Route: 065
  5. XTANDI [Suspect]
     Active Substance: ENZALUTAMIDE
     Indication: Hormone-refractory prostate cancer
     Route: 065
  6. DOCETAXEL [Suspect]
     Active Substance: DOCETAXEL
     Indication: Hormone-refractory prostate cancer
     Route: 065
  7. CASODEX [Suspect]
     Active Substance: BICALUTAMIDE
     Indication: Hormone-refractory prostate cancer
     Route: 065

REACTIONS (5)
  - Prostate cancer [Unknown]
  - Illness [Unknown]
  - Cancer pain [Unknown]
  - Drug ineffective [Unknown]
  - Prostatic specific antigen increased [Unknown]
